FAERS Safety Report 6018771-X (Version None)
Quarter: 2008Q4

REPORT INFORMATION
  Report Type: 
  Country: None (occurrence: None)
  Receive Date: 20081222
  Receipt Date: 20081209
  Transmission Date: 20090506
  Serious: Yes (Hospitalization)
  Sender: FDA-Public Use
  Company Number: 20085747

PATIENT
  Sex: Female

DRUGS (1)
  1. LIORESAL [Suspect]
     Indication: MUSCLE SPASTICITY
     Dosage: 811.5 MCG, DAILY, INTRATHECAL
     Route: 037

REACTIONS (6)
  - CONVULSION [None]
  - DRUG WITHDRAWAL SYNDROME [None]
  - MEDICAL DEVICE COMPLICATION [None]
  - MUSCLE SPASTICITY [None]
  - MUSCLE TWITCHING [None]
  - SOMNOLENCE [None]
